FAERS Safety Report 11510774 (Version 1)
Quarter: 2015Q3

REPORT INFORMATION
  Report Type: Report from Study
  Country: CN (occurrence: CN)
  Receive Date: 20150915
  Receipt Date: 20150915
  Transmission Date: 20151125
  Serious: Yes (Other)
  Sender: FDA-Public Use
  Company Number: CN-ASTELLAS-2015US033047

PATIENT
  Age: 76 Year
  Sex: Male

DRUGS (1)
  1. MICAFUNGIN [Suspect]
     Active Substance: MICAFUNGIN
     Indication: FUNGAL INFECTION
     Route: 042
     Dates: start: 20130820, end: 20130912

REACTIONS (7)
  - Palpitations [Recovering/Resolving]
  - Non-cardiac chest pain [Unknown]
  - Blister [Recovering/Resolving]
  - Chest discomfort [Recovering/Resolving]
  - Electrolyte imbalance [Recovering/Resolving]
  - Dyspnoea [Recovering/Resolving]
  - Erythema [Recovering/Resolving]

NARRATIVE: CASE EVENT DATE: 20130824
